FAERS Safety Report 22158496 (Version 3)
Quarter: 2023Q2

REPORT INFORMATION
  Report Type: Report from Study
  Country: US (occurrence: US)
  Receive Date: 20230331
  Receipt Date: 20230619
  Transmission Date: 20230721
  Serious: No
  Sender: FDA-Public Use
  Company Number: US-AMGEN-USASP2023055251

PATIENT
  Sex: Female

DRUGS (2)
  1. ENBREL [Suspect]
     Active Substance: ETANERCEPT
     Indication: Rheumatoid arthritis
     Dosage: 50 MILLIGRAM, QWK
     Route: 058
  2. ENBREL [Suspect]
     Active Substance: ETANERCEPT
     Indication: Osteoarthritis
     Dosage: UNK UNK, QWK
     Route: 065
     Dates: start: 2022

REACTIONS (9)
  - COVID-19 [Recovered/Resolved]
  - Decreased immune responsiveness [Unknown]
  - Abdominal pain upper [Recovered/Resolved]
  - Pollakiuria [Unknown]
  - Mobility decreased [Unknown]
  - Swelling [Unknown]
  - Peripheral swelling [Unknown]
  - Faecal volume increased [Unknown]
  - Rash [Unknown]
